FAERS Safety Report 9786877 (Version 2)
Quarter: 2014Q1

REPORT INFORMATION
  Report Type: Spontaneous
  Country: US (occurrence: US)
  Receive Date: 20131227
  Receipt Date: 20140107
  Transmission Date: 20141002
  Serious: No
  Sender: FDA-Public Use
  Company Number: US-BAXTER-2013BAX052362

PATIENT
  Age: 1 Year
  Sex: Male

DRUGS (1)
  1. RIXUBIS [Suspect]
     Indication: PRODUCT USED FOR UNKNOWN INDICATION
     Route: 042
     Dates: start: 20131217, end: 20131217

REACTIONS (1)
  - Urticaria [Recovered/Resolved]
